FAERS Safety Report 9009659 (Version 1)
Quarter: 2013Q1

REPORT INFORMATION
  Report Type: Spontaneous
  Country: FR (occurrence: FR)
  Receive Date: 20130110
  Receipt Date: 20130110
  Transmission Date: 20140127
  Serious: Yes (Other)
  Sender: FDA-Public Use
  Company Number: FR-GILEAD-2013-0067537

PATIENT
  Age: 44 Year
  Sex: Female

DRUGS (35)
  1. VISTIDE [Suspect]
     Indication: PLASMA CELL MYELOMA
     Dosage: UNK
     Dates: start: 20121103, end: 20121122
  2. VISTIDE [Suspect]
     Dosage: UNK
     Route: 043
  3. BENEMID [Suspect]
     Dosage: 1 DF, UNK
     Route: 048
     Dates: start: 20121102, end: 20121109
  4. ALKERAN [Suspect]
     Dosage: 1 DF, UNK
     Route: 042
     Dates: start: 200901, end: 20121020
  5. BUSILVEX [Suspect]
     Dosage: 60 MG, UNK
     Route: 042
     Dates: start: 20121016, end: 20121020
  6. GENTAMICINE [Concomitant]
     Dosage: UNK
     Dates: start: 20121015, end: 20121029
  7. VALACICLOVIR [Concomitant]
     Dosage: UNK
     Dates: start: 20121015, end: 20121021
  8. VALACICLOVIR [Concomitant]
     Dosage: UNK
     Dates: start: 20121101, end: 20121106
  9. VALACICLOVIR [Concomitant]
     Dosage: UNK
     Dates: start: 20121110
  10. DEPAKINE [Concomitant]
     Dosage: UNK
     Dates: start: 20121015, end: 20121022
  11. OMEPRAZOLE [Concomitant]
     Dosage: UNK
     Dates: start: 20121015
  12. FLUCONAZOLE [Concomitant]
     Dosage: UNK
     Dates: start: 20121017
  13. BACTRIM [Concomitant]
     Dosage: UNK
     Dates: start: 20121017
  14. ASPEGIC [Concomitant]
     Dosage: UNK
     Dates: start: 20121016, end: 20121023
  15. ZOPHREN                            /00955301/ [Concomitant]
     Dosage: UNK
     Dates: start: 20121016, end: 20121020
  16. ROCEPHINE [Concomitant]
     Dosage: UNK
     Dates: start: 20121017, end: 20121022
  17. PLITICAN [Concomitant]
     Dosage: UNK
     Dates: start: 20121019
  18. VANCOMYCINE MYLAN [Concomitant]
     Dosage: UNK
     Dates: start: 20121019, end: 20121027
  19. PARACETAMOL [Concomitant]
     Dosage: UNK
     Dates: start: 20121021
  20. IMIPENEM CILASTATINE PANPHARMA [Concomitant]
     Dosage: UNK
     Dates: start: 20121022
  21. MORPHINE AGUETTANT [Concomitant]
     Dosage: UNK
     Dates: start: 20121024
  22. TRIATEC                            /00116401/ [Concomitant]
     Dosage: UNK
     Dates: start: 20121023
  23. CYMEVAN [Concomitant]
     Dosage: UNK
     Dates: start: 20121102
  24. AMPHOTERICIN B [Concomitant]
     Dosage: UNK
     Dates: start: 20121102
  25. DOXYCYCLINE SANDOZ                 /00055701/ [Concomitant]
     Dosage: UNK
     Dates: start: 20121029, end: 20121105
  26. CIPROFLOXACINE                     /00697201/ [Concomitant]
     Dosage: UNK
     Dates: start: 20121029, end: 20121110
  27. PIPERACILLINE/TAZOBACTAM [Concomitant]
     Dosage: UNK
     Dates: start: 20121021, end: 20121102
  28. ZYVOXID [Concomitant]
     Dosage: UNK
     Dates: start: 20121021, end: 20121026
  29. ZOVIRAX                            /00587301/ [Concomitant]
     Dosage: UNK
     Dates: start: 20121021, end: 20121028
  30. CLAIRYG [Concomitant]
     Dosage: UNK
     Dates: start: 20121115
  31. DAFALGAN [Concomitant]
     Dosage: UNK
     Dates: start: 20121106
  32. ZOLPIDEM ARROW [Concomitant]
     Dosage: UNK
     Dates: start: 20121105
  33. VOLTARENE                          /00372302/ [Concomitant]
     Dosage: UNK
     Dates: start: 20121102, end: 20121105
  34. ALPRAZOLAM MYLAN [Concomitant]
     Dosage: UNK
     Dates: start: 20121027, end: 20121104
  35. ACUPAN [Concomitant]
     Dosage: UNK
     Dates: start: 20121027, end: 20121104

REACTIONS (1)
  - Palmar-plantar erythrodysaesthesia syndrome [Not Recovered/Not Resolved]
